FAERS Safety Report 23537714 (Version 2)
Quarter: 2024Q1

REPORT INFORMATION
  Report Type: Report from Study
  Country: KR (occurrence: KR)
  Receive Date: 20240219
  Receipt Date: 20240311
  Transmission Date: 20240410
  Serious: Yes (Death, Hospitalization)
  Sender: FDA-Public Use
  Company Number: KR-SA-SAC20240214000548

PATIENT
  Age: 61 Year
  Sex: Male
  Weight: 74.9 kg

DRUGS (11)
  1. AFLIBERCEPT [Suspect]
     Active Substance: AFLIBERCEPT
     Indication: Colon cancer
     Dosage: 4 MG/KG, BIW
     Route: 042
     Dates: start: 20231130, end: 20240207
  2. IRINOTECAN [Concomitant]
     Active Substance: IRINOTECAN
     Indication: Colon cancer
     Dosage: 150 MG/M2, BIW
     Route: 042
     Dates: start: 20231130, end: 20240207
  3. LEUCOVORIN CALCIUM [Concomitant]
     Active Substance: LEUCOVORIN CALCIUM
     Indication: Colon cancer
     Dosage: 400 MG/M2, BIW
     Route: 042
     Dates: start: 20231130, end: 20240207
  4. FLUOROURACIL [Concomitant]
     Active Substance: FLUOROURACIL
     Indication: Colon cancer
     Dosage: 400 MG/M2, BIW
     Route: 040
     Dates: start: 20231130, end: 20240207
  5. FLUOROURACIL [Concomitant]
     Active Substance: FLUOROURACIL
     Indication: Colon cancer
     Dosage: 2400 MG/M2, BIW
     Route: 042
     Dates: start: 20231130, end: 20240209
  6. HERBALS [Concomitant]
     Active Substance: HERBALS
     Indication: Gastritis prophylaxis
     Dosage: 30 MG, TID
     Route: 048
     Dates: start: 20230521, end: 20240228
  7. TANTUM [BENZYDAMINE HYDROCHLORIDE] [Concomitant]
     Indication: Prophylaxis
     Dosage: 15 ML, PRN(GARGLE)
     Dates: start: 20230522, end: 20240210
  8. ERDOSTEINE [Concomitant]
     Active Substance: ERDOSTEINE
     Indication: Prophylaxis
     Dosage: 300 MG, TID
     Route: 048
     Dates: start: 20231213, end: 20240225
  9. CODEINE [Concomitant]
     Active Substance: CODEINE
     Indication: Cough
     Dosage: 20 MG, TID
     Route: 048
     Dates: start: 20231213, end: 20240209
  10. MACPERAN [METOCLOPRAMIDE HYDROCHLORIDE] [Concomitant]
     Indication: Prophylaxis of nausea and vomiting
     Dosage: 5 MG, PRN
     Route: 048
     Dates: start: 20240103, end: 20240210
  11. MEGACE F [Concomitant]
     Indication: Prophylaxis
     Dosage: 5 ML, QD
     Route: 048
     Dates: start: 20240103, end: 20240215

REACTIONS (1)
  - Pneumonitis [Fatal]

NARRATIVE: CASE EVENT DATE: 20240208
